FAERS Safety Report 5707548-8 (Version None)
Quarter: 2008Q2

REPORT INFORMATION
  Report Type: 
  Country: None (occurrence: None)
  Receive Date: 20080416
  Receipt Date: 20080401
  Transmission Date: 20081010
  Serious: Yes (Hospitalization)
  Sender: FDA-Public Use
  Company Number: US-AMGEN-US267609

PATIENT
  Sex: Female
  Weight: 77.1 kg

DRUGS (18)
  1. ROMIPLOSTIM [Suspect]
     Indication: THROMBOCYTOPENIA
     Dates: start: 20080213
  2. NEULASTA [Suspect]
     Indication: CHEMOTHERAPY
     Route: 058
     Dates: start: 20080213
  3. RITUXIMAB [Suspect]
     Route: 042
     Dates: start: 20080212
  4. CYCLOPHOSPHAMIDE [Suspect]
     Route: 042
     Dates: start: 20080212, end: 20080229
  5. CYCLOPHOSPHAMIDE [Suspect]
     Route: 042
     Dates: start: 20080229
  6. DOXORUBICIN HYDROCHLORIDE [Suspect]
     Route: 042
     Dates: start: 20080212, end: 20080229
  7. DOXORUBICIN HYDROCHLORIDE [Suspect]
     Route: 042
     Dates: start: 20080229
  8. VINCRISTINE [Suspect]
     Route: 042
     Dates: start: 20080212
  9. PREDNISONE [Suspect]
     Route: 048
     Dates: start: 20080212
  10. DIPROLENE [Concomitant]
     Route: 061
  11. BACTROBAN [Concomitant]
     Route: 061
  12. SILVADENE [Concomitant]
     Route: 061
  13. PLAQUENIL [Concomitant]
  14. DARVON [Concomitant]
     Route: 048
     Dates: start: 20080212
  15. POTASSIUM CHLORIDE [Concomitant]
     Route: 065
     Dates: start: 20071205
  16. PEPCID [Concomitant]
     Route: 048
     Dates: start: 20071205
  17. SENOKOT [Concomitant]
     Route: 048
     Dates: start: 20071205
  18. ATIVAN, BENADRYL + HALDOL [Concomitant]
     Route: 065

REACTIONS (3)
  - FEBRILE NEUTROPENIA [None]
  - MUCOSAL INFLAMMATION [None]
  - UPPER RESPIRATORY TRACT INFECTION [None]
